FAERS Safety Report 9772523 (Version 1)
Quarter: 2013Q4

REPORT INFORMATION
  Report Type: Spontaneous
  Country: JP (occurrence: None)
  Receive Date: 20131217
  Receipt Date: 20131217
  Transmission Date: 20140711
  Serious: Yes (Congenital Anomaly)
  Sender: FDA-Public Use
  Company Number: 7255908

PATIENT
  Sex: Male

DRUGS (2)
  1. LEVOTHYROXINE (LEVOTHYROXINE) [Suspect]
     Indication: GENERALISED RESISTANCE TO THYROID HORMONE
  2. CHORIOGONADOTROPIN ALFA [Suspect]
     Indication: PREGNANCY

REACTIONS (3)
  - Cephalo-pelvic disproportion [None]
  - Foetal exposure during pregnancy [None]
  - Caesarean section [None]
